FAERS Safety Report 4749253-0 (Version None)
Quarter: 2005Q3

REPORT INFORMATION
  Report Type: 
  Country: None (occurrence: None)
  Receive Date: 20050819
  Receipt Date: 20050720
  Transmission Date: 20060218
  Serious: Yes (Hospitalization, Other)
  Sender: FDA-Public Use
  Company Number: FR-ABBOTT-05P-056-0306424-00

PATIENT
  Age: 81 Year
  Sex: Male
  Weight: 76 kg

DRUGS (11)
  1. ZECLAR [Suspect]
     Indication: BRONCHITIS
     Route: 048
     Dates: start: 20050524, end: 20050531
  2. ZECLAR [Suspect]
     Indication: INFLAMMATION
  3. INIPOMP [Suspect]
     Route: 048
     Dates: start: 20050118
  4. ACETYLSALICYLATE LYSINE [Suspect]
     Indication: DRUG USE FOR UNKNOWN INDICATION
     Route: 048
     Dates: start: 20050118
  5. THALIDOMIDE [Suspect]
     Indication: DRUG USE FOR UNKNOWN INDICATION
     Route: 048
     Dates: start: 20050118, end: 20050708
  6. AMLODIPINE BESYLATE [Suspect]
     Route: 048
     Dates: start: 20050118
  7. ACETYLSALICYLATE LYSINE [Suspect]
     Route: 048
     Dates: start: 20050118
  8. CARBOCISTEINE [Concomitant]
     Indication: BRONCHITIS
     Dates: start: 20050524
  9. POTASSIUM CHLORIDE [Concomitant]
     Indication: BRONCHITIS
     Dates: start: 20050524
  10. METROSPASMYL [Concomitant]
     Indication: ABDOMINAL PAIN
     Dates: start: 20050623
  11. STASFON [Concomitant]
     Indication: ABDOMINAL PAIN
     Dates: start: 20050623

REACTIONS (16)
  - ABDOMINAL PAIN [None]
  - ANOREXIA [None]
  - ASTHENIA [None]
  - DEHYDRATION [None]
  - DIARRHOEA [None]
  - DRUG INEFFECTIVE [None]
  - DYSPNOEA [None]
  - GENERAL PHYSICAL HEALTH DETERIORATION [None]
  - NEUROPATHY PERIPHERAL [None]
  - PAIN [None]
  - PALLOR [None]
  - PANCYTOPENIA [None]
  - RENAL FAILURE ACUTE [None]
  - TACHYPNOEA [None]
  - THIRST [None]
  - VOMITING [None]
